FAERS Safety Report 19074387 (Version 1)
Quarter: 2021Q1

REPORT INFORMATION
  Report Type: Spontaneous
  Country: CG (occurrence: CG)
  Receive Date: 20210330
  Receipt Date: 20210330
  Transmission Date: 20210420
  Serious: Yes (Death, Other)
  Sender: FDA-Public Use
  Company Number: CG-SLATE RUN PHARMACEUTICALS-21CG000437

PATIENT

DRUGS (6)
  1. CEFTRIAXONE. [Concomitant]
     Active Substance: CEFTRIAXONE
     Indication: MATERNAL EXPOSURE TIMING UNSPECIFIED
     Route: 064
  2. NIFEDIPINE. [Concomitant]
     Active Substance: NIFEDIPINE
     Indication: MATERNAL EXPOSURE TIMING UNSPECIFIED
     Dosage: UNK
     Route: 064
  3. ACETAMINOPHEN. [Concomitant]
     Active Substance: ACETAMINOPHEN
     Indication: MATERNAL EXPOSURE TIMING UNSPECIFIED
     Route: 064
  4. AZITHROMYCIN USP [Suspect]
     Active Substance: AZITHROMYCIN
     Indication: MATERNAL EXPOSURE TIMING UNSPECIFIED
     Dosage: UNK
     Route: 064
  5. TRIMETHYLPHLOROGLUCINOL [Concomitant]
     Active Substance: 1,3,5-TRIMETHOXYBENZENE
     Indication: MATERNAL EXPOSURE TIMING UNSPECIFIED
     Route: 064
  6. DEXAMETHASONE. [Concomitant]
     Active Substance: DEXAMETHASONE
     Indication: MATERNAL EXPOSURE TIMING UNSPECIFIED
     Dosage: 12 MILLIGRAM, QD
     Route: 064

REACTIONS (9)
  - Premature baby [Unknown]
  - COVID-19 [Unknown]
  - Sepsis neonatal [Fatal]
  - Neonatal respiratory distress [Unknown]
  - Enterobacter infection [Unknown]
  - Citrobacter infection [Unknown]
  - Foetal exposure during pregnancy [Recovered/Resolved]
  - Jaundice neonatal [Unknown]
  - Colitis ulcerative [Unknown]
